FAERS Safety Report 6254476-8 (Version None)
Quarter: 2009Q3

REPORT INFORMATION
  Report Type: 
  Country: None (occurrence: None)
  Receive Date: 20090702
  Receipt Date: 20090625
  Transmission Date: 20100115
  Serious: Yes (Hospitalization, Other)
  Sender: FDA-Public Use
  Company Number: US-BRISTOL-MYERS SQUIBB COMPANY-14635775

PATIENT
  Age: 74 Year
  Sex: Female
  Weight: 53 kg

DRUGS (14)
  1. DASATINIB [Suspect]
     Indication: MYELODYSPLASTIC SYNDROME
     Route: 048
     Dates: start: 20090506, end: 20090603
  2. HYDREA [Suspect]
  3. DUONEB [Suspect]
  4. CARTIA XT [Concomitant]
  5. ACTOS [Concomitant]
  6. VITAMIN K [Concomitant]
  7. SINGULAIR [Concomitant]
  8. LASIX [Concomitant]
  9. LEVOTHYROXINE SODIUM [Concomitant]
  10. GLYBURIDE AND METFORMIN HCL [Concomitant]
  11. CENTRUM SILVER [Concomitant]
  12. OSCAL D [Concomitant]
  13. MULTI-VITAMIN [Concomitant]
  14. POTASSIUM CHLORIDE [Concomitant]

REACTIONS (7)
  - CARDIAC FAILURE CONGESTIVE [None]
  - DYSPNOEA [None]
  - FATIGUE [None]
  - PLEURAL EFFUSION [None]
  - PULMONARY HYPERTENSION [None]
  - RENAL FAILURE ACUTE [None]
  - SUPRAVENTRICULAR TACHYCARDIA [None]
